FAERS Safety Report 17008581 (Version 1)
Quarter: 2019Q4

REPORT INFORMATION
  Report Type: Spontaneous
  Country: GB (occurrence: GB)
  Receive Date: 20191108
  Receipt Date: 20191108
  Transmission Date: 20200122
  Serious: Yes (Other)
  Sender: FDA-Public Use
  Company Number: GB-TEVA-2019-GB-1135355

PATIENT
  Age: 67 Year
  Sex: Female
  Weight: 70 kg

DRUGS (6)
  1. BETAMETHASONE VALERATE. [Concomitant]
     Active Substance: BETAMETHASONE VALERATE
     Dosage: APPLY AS DIRECTED 2 DOSAGE FORMS
     Dates: start: 20180221, end: 20191004
  2. GLICLAZIDE [Concomitant]
     Active Substance: GLICLAZIDE
     Dosage: WITH BREAKFAST, 1 DOSAGE FORMS
     Dates: start: 20131002, end: 20191004
  3. FLUCLOXACILLIN [Concomitant]
     Active Substance: FLUCLOXACILLIN
     Dosage: BEFORE MEALS 4 DOSAGE FORMS
     Dates: start: 20020208, end: 20191004
  4. METFORMIN [Concomitant]
     Active Substance: METFORMIN HYDROCHLORIDE
     Dosage: 4 DOSAGE FORMS
     Dates: start: 20060810, end: 20191004
  5. RAMIPRIL. [Concomitant]
     Active Substance: RAMIPRIL
     Dosage: 1 DOSAGE FORMS
     Dates: start: 20180417, end: 20191004
  6. SIMVASTATIN. [Suspect]
     Active Substance: SIMVASTATIN
     Dosage: 10 MG
     Dates: start: 20061101

REACTIONS (2)
  - Sensory disturbance [Recovered/Resolved]
  - Paraesthesia [Unknown]

NARRATIVE: CASE EVENT DATE: 20191004
